FAERS Safety Report 8761189 (Version 1)
Quarter: 2012Q4

REPORT INFORMATION
  Report Type: 
  Country: US (occurrence: US)
  Receive Date: 20120830
  Receipt Date: 20120830
  Transmission Date: 20130627
  Serious: Yes (Other)
  Sender: FDA-Public Use
  Company Number: US-ALEXION-A201201555

PATIENT
  Sex: Female
  Weight: 84.35 kg

DRUGS (1)
  1. SOLIRIS 300MG [Suspect]
     Indication: PAROXYSMAL NOCTURNAL HAEMOGLOBINURIA
     Dosage: UNK
     Dates: start: 200904, end: 201004

REACTIONS (5)
  - Presyncope [Recovered/Resolved]
  - Rash [Recovered/Resolved]
  - Contusion [Recovered/Resolved]
  - Asthenia [Recovered/Resolved]
  - Headache [Recovered/Resolved]
